FAERS Safety Report 4932980-X (Version None)
Quarter: 2006Q1

REPORT INFORMATION
  Report Type: 
  Country: None (occurrence: None)
  Receive Date: 20060301
  Receipt Date: 20060220
  Transmission Date: 20060701
  Serious: Yes (Other)
  Sender: FDA-Public Use
  Company Number: 2006008743

PATIENT
  Sex: Female

DRUGS (4)
  1. NORVASC [Suspect]
     Indication: ILL-DEFINED DISORDER
     Dates: start: 20010101
  2. PLAVIX [Concomitant]
  3. ZOCOR [Concomitant]
  4. WARFARIN SODIUM [Concomitant]

REACTIONS (1)
  - LOWER LIMB FRACTURE [None]
